FAERS Safety Report 21218704 (Version 10)
Quarter: 2023Q4

REPORT INFORMATION
  Report Type: Report from Study
  Country: US (occurrence: US)
  Receive Date: 20220816
  Receipt Date: 20231222
  Transmission Date: 20240110
  Serious: Yes (Hospitalization, Other)
  Sender: FDA-Public Use
  Company Number: US-PFIZER INC-PV202200043676

PATIENT
  Age: 68 Year
  Sex: Female
  Weight: 87.075 kg

DRUGS (20)
  1. IBRANCE [Suspect]
     Active Substance: PALBOCICLIB
     Dosage: 125 MG, CYCLIC (TAKE WHOLE W/ H2O, W/ OR W/OUT FOOD)
     Route: 048
     Dates: start: 20220727
  2. IBRANCE [Suspect]
     Active Substance: PALBOCICLIB
     Dosage: UNK
  3. ZOLEDRONIC [Concomitant]
     Active Substance: ZOLEDRONIC ACID
     Dosage: UNK
  4. IMODIUM A-D [Concomitant]
     Active Substance: LOPERAMIDE HYDROCHLORIDE
     Dosage: UNK
  5. MELATONIN [Concomitant]
     Active Substance: MELATONIN
     Dosage: 12 MG
  6. ACETAMINOPHEN [Concomitant]
     Active Substance: ACETAMINOPHEN
     Dosage: UNK
  7. AMLODIPINE [Concomitant]
     Active Substance: AMLODIPINE BESYLATE
     Dosage: 2.5 MG
  8. ASPIRIN [Concomitant]
     Active Substance: ASPIRIN
     Dosage: 325 MG
  9. VITAMIN B COMPLEX [Concomitant]
     Active Substance: CYANOCOBALAMIN\DEXPANTHENOL\NIACINAMIDE\PYRIDOXINE HYDROCHLORIDE\RIBOFLAVIN 5^-PHOSPHATE SODIUM\THIA
     Dosage: UNK
  10. CYCLOBENZAPRINE [Concomitant]
     Active Substance: CYCLOBENZAPRINE
     Dosage: 5 MG
  11. FISH OIL [Concomitant]
     Active Substance: FISH OIL
     Dosage: 1200 MG
  12. FLUOXETINE [Concomitant]
     Active Substance: FLUOXETINE HYDROCHLORIDE
     Dosage: 10 MG
  13. LEVOCETIRIZINE DIHYDROCHLORIDE [Concomitant]
     Active Substance: LEVOCETIRIZINE DIHYDROCHLORIDE
     Dosage: 5 MG
  14. LEVOTHYROXINE [Concomitant]
     Active Substance: LEVOTHYROXINE
     Dosage: 75 MG
  15. OMEPRAZOLE [Concomitant]
     Active Substance: OMEPRAZOLE
     Dosage: 20 MG
  16. ONDANSETRON [Concomitant]
     Active Substance: ONDANSETRON
     Dosage: 8 MG
  17. OXCARBAZEPINE [Concomitant]
     Active Substance: OXCARBAZEPINE
     Dosage: 150 MG
  18. SIMVASTATIN [Concomitant]
     Active Substance: SIMVASTATIN
     Dosage: 40 MG
  19. ERGOCALCIFEROL [Concomitant]
     Active Substance: ERGOCALCIFEROL
     Dosage: UNK
  20. LETROZOLE [Concomitant]
     Active Substance: LETROZOLE
     Dosage: 2.5 MG

REACTIONS (45)
  - Hypoxia [Unknown]
  - Muscular weakness [Unknown]
  - Neuropathy peripheral [Unknown]
  - Foot fracture [Unknown]
  - Product dose omission in error [Unknown]
  - Asthenia [Unknown]
  - Insomnia [Unknown]
  - Restless legs syndrome [Unknown]
  - Diarrhoea [Unknown]
  - Constipation [Unknown]
  - Nausea [Recovered/Resolved]
  - Headache [Unknown]
  - Flatulence [Unknown]
  - Increased appetite [Unknown]
  - Dyspnoea [Unknown]
  - Peripheral coldness [Unknown]
  - Hot flush [Unknown]
  - Chills [Unknown]
  - Vertigo [Unknown]
  - Full blood count decreased [Unknown]
  - Pyrexia [Unknown]
  - White blood cell count decreased [Unknown]
  - Limb discomfort [Unknown]
  - Chapped lips [Unknown]
  - Lip haemorrhage [Unknown]
  - Skin exfoliation [Unknown]
  - Fatigue [Unknown]
  - Pain in extremity [Unknown]
  - Feeling cold [Unknown]
  - Balance disorder [Unknown]
  - Gait disturbance [Unknown]
  - Nervousness [Unknown]
  - Myalgia [Unknown]
  - Decreased appetite [Unknown]
  - Depression [Unknown]
  - Hair texture abnormal [Unknown]
  - Pruritus [Unknown]
  - Rash [Unknown]
  - Burning sensation [Unknown]
  - Blood pressure abnormal [Unknown]
  - Somnolence [Unknown]
  - Weight decreased [Unknown]
  - Diverticulum [Unknown]
  - Irritable bowel syndrome [Unknown]
  - Oesophageal disorder [Unknown]

NARRATIVE: CASE EVENT DATE: 20220101
